FAERS Safety Report 7369379-5 (Version None)
Quarter: 2011Q1

REPORT INFORMATION
  Report Type: 
  Country: None (occurrence: None)
  Receive Date: 20110323
  Receipt Date: 20110309
  Transmission Date: 20110831
  Serious: Yes (Hospitalization)
  Sender: FDA-Public Use
  Company Number: US-AMGEN-USASP2011013324

PATIENT
  Age: 59 Year
  Sex: Female

DRUGS (1)
  1. ENBREL [Suspect]
     Indication: RHEUMATOID ARTHRITIS
     Dosage: 25 MG, QWK
     Dates: start: 20090901

REACTIONS (7)
  - DENTAL DISCOMFORT [None]
  - RHEUMATOID ARTHRITIS [None]
  - MALAISE [None]
  - DEVICE FAILURE [None]
  - SINUS CONGESTION [None]
  - PYREXIA [None]
  - RESPIRATORY TRACT CONGESTION [None]
